FAERS Safety Report 7249970-7 (Version None)
Quarter: 2011Q1

REPORT INFORMATION
  Report Type: 
  Country: None (occurrence: None)
  Receive Date: 20110128
  Receipt Date: 20101130
  Transmission Date: 20110831
  Serious: No
  Sender: FDA-Public Use
  Company Number: A0893240A

PATIENT
  Age: 72 Year
  Sex: Male

DRUGS (11)
  1. TRAVATAN [Concomitant]
  2. ZOCOR [Concomitant]
  3. ASPIRIN [Concomitant]
  4. WELLBUTRIN [Suspect]
     Route: 065
  5. VITAMIN D [Concomitant]
  6. MIRALAX [Concomitant]
  7. FOSAMAX [Concomitant]
  8. CYMBALTA [Concomitant]
  9. VIAGRA [Concomitant]
  10. PRILOSEC [Concomitant]
  11. CALCIUM [Concomitant]

REACTIONS (2)
  - BREAST TENDERNESS [None]
  - BREAST INDURATION [None]
